FAERS Safety Report 7819583-4 (Version None)
Quarter: 2011Q4

REPORT INFORMATION
  Report Type: 
  Country: None (occurrence: None)
  Receive Date: 20111018
  Receipt Date: 20111018
  Transmission Date: 20120403
  Serious: Yes (Hospitalization)
  Sender: FDA-Public Use
  Company Number: None

PATIENT
  Age: 58 Year
  Sex: Male
  Weight: 82.5 kg

DRUGS (1)
  1. CYTARABINE [Suspect]
     Indication: CHEMOTHERAPY
     Dosage: 2,970MG
     Route: 042
     Dates: start: 20111003, end: 20111008

REACTIONS (3)
  - OROPHARYNGEAL PAIN [None]
  - FEBRILE NEUTROPENIA [None]
  - RHINORRHOEA [None]
